FAERS Safety Report 24284245 (Version 1)
Quarter: 2024Q3

REPORT INFORMATION
  Report Type: Spontaneous
  Country: CA (occurrence: CA)
  Receive Date: 20240905
  Receipt Date: 20240905
  Transmission Date: 20241017
  Serious: Yes (Death)
  Sender: CHEPLAPHARM
  Company Number: CA-AstraZeneca-2022A276250

PATIENT
  Age: 51 Year
  Sex: Female

DRUGS (8)
  1. QUETIAPINE [Interacting]
     Active Substance: QUETIAPINE
     Indication: Product used for unknown indication
  2. OLANZAPINE [Interacting]
     Active Substance: OLANZAPINE
     Indication: Product used for unknown indication
  3. BROMAZEPAM [Interacting]
     Active Substance: BROMAZEPAM
     Indication: Product used for unknown indication
  4. AMITRIPTYLINE [Interacting]
     Active Substance: AMITRIPTYLINE
     Indication: Product used for unknown indication
  5. BUPROPION [Interacting]
     Active Substance: BUPROPION
     Indication: Product used for unknown indication
  6. CITALOPRAM [Interacting]
     Active Substance: CITALOPRAM\CITALOPRAM HYDROBROMIDE
     Indication: Product used for unknown indication
  7. HYDROMORPHONE [Interacting]
     Active Substance: HYDROMORPHONE
     Indication: Product used for unknown indication
  8. LORAZEPAM [Interacting]
     Active Substance: LORAZEPAM
     Indication: Product used for unknown indication

REACTIONS (10)
  - Dizziness [Fatal]
  - Accidental death [Fatal]
  - Arrhythmia [Fatal]
  - Fall [Fatal]
  - Fatigue [Fatal]
  - Malaise [Fatal]
  - Oedema [Fatal]
  - Pulmonary congestion [Fatal]
  - Somnolence [Fatal]
  - Labelled drug-drug interaction issue [Fatal]
